FAERS Safety Report 7107486-2 (Version None)
Quarter: 2010Q4

REPORT INFORMATION
  Report Type: 
  Country: None (occurrence: None)
  Receive Date: 20101018
  Receipt Date: 20091028
  Transmission Date: 20110411
  Serious: Yes (Other)
  Sender: FDA-Public Use
  Company Number: US-WYE-H10773309

PATIENT
  Age: 63 Year
  Sex: Female
  Weight: 45.4 kg

DRUGS (10)
  1. PREMARIN [Suspect]
     Indication: HORMONE REPLACEMENT THERAPY
     Dosage: 1.25 MG 1X PER 1 DAY, ORAL
     Route: 048
     Dates: start: 19750101, end: 20090830
  2. EMULOSE (LACTULOSE) [Concomitant]
  3. DARVOCET [Concomitant]
  4. LIDODERM [Concomitant]
  5. FLECTOR [Concomitant]
  6. RESTASIS (CYCLOSPORINE) [Concomitant]
  7. PHENERGAN HCL [Concomitant]
  8. RECLAST [Concomitant]
  9. MULTI-VITAMINS [Concomitant]
  10. FPONARIS (CAJUPUT OIL /COTTONSEED OIL/EUCALYPTUS OIL/PEPPERMINT OIL) [Concomitant]

REACTIONS (1)
  - BREAST CANCER IN SITU [None]
